FAERS Safety Report 7777276-6 (Version None)
Quarter: 2011Q3

REPORT INFORMATION
  Report Type: 
  Country: None (occurrence: None)
  Receive Date: 20110926
  Receipt Date: 20110921
  Transmission Date: 20111222
  Serious: Yes (Death, Other)
  Sender: FDA-Public Use
  Company Number: PHHY2011BR83986

PATIENT
  Sex: Male

DRUGS (1)
  1. DIOVAN [Suspect]
     Indication: HYPERTENSION
     Dosage: 1 DF, DAILY

REACTIONS (3)
  - SUDDEN DEATH [None]
  - CHRONIC OBSTRUCTIVE PULMONARY DISEASE [None]
  - SCREAMING [None]
